FAERS Safety Report 4284941-4 (Version None)
Quarter: 2004Q1

REPORT INFORMATION
  Report Type: 
  Country: None (occurrence: None)
  Receive Date: 20040202
  Receipt Date: 20040122
  Transmission Date: 20041129
  Serious: Yes (Other)
  Sender: FDA-Public Use
  Company Number: 2004004965

PATIENT
  Age: 53 Year
  Sex: Female
  Weight: 77.11 kg

DRUGS (2)
  1. LIPITOR [Suspect]
     Indication: HYPERCHOLESTEROLAEMIA
     Dosage: 40 MG (DAILY), ORAL
     Route: 048
     Dates: start: 20030930, end: 20031104
  2. EZETIMIBE (EZETIMIBE) [Suspect]
     Indication: HYPERCHOLESTEROLAEMIA
     Dosage: 10 MG (DAILY), ORAL
     Route: 048
     Dates: start: 20030603

REACTIONS (3)
  - ALANINE AMINOTRANSFERASE INCREASED [None]
  - DRUG INTERACTION [None]
  - GAMMA-GLUTAMYLTRANSFERASE INCREASED [None]
